FAERS Safety Report 4295745-0 (Version None)
Quarter: 2004Q1

REPORT INFORMATION
  Report Type: 
  Country: None (occurrence: None)
  Receive Date: 20040216
  Receipt Date: 20031024
  Transmission Date: 20041129
  Serious: Yes (Other)
  Sender: FDA-Public Use
  Company Number: US-GLAXOSMITHKLINE-A0431545A

PATIENT
  Sex: Female

DRUGS (5)
  1. LAMICTAL [Suspect]
     Indication: EPILEPSY
     Dosage: 150MG TWICE PER DAY
     Route: 048
  2. KEPPRA [Concomitant]
  3. SYNTHROID [Concomitant]
  4. MOTRIN [Concomitant]
  5. FLEXERIL [Concomitant]

REACTIONS (2)
  - CONFUSIONAL STATE [None]
  - LOSS OF CONSCIOUSNESS [None]
